FAERS Safety Report 7809383-3 (Version None)
Quarter: 2011Q4

REPORT INFORMATION
  Report Type: 
  Country: None (occurrence: None)
  Receive Date: 20111012
  Receipt Date: 20111006
  Transmission Date: 20120403
  Serious: Yes (Hospitalization, Other)
  Sender: FDA-Public Use
  Company Number: CZ-ABBOTT-11P-217-0861029-00

PATIENT
  Sex: Male
  Weight: 62 kg

DRUGS (2)
  1. CLARITHROMYCIN [Suspect]
     Indication: CHLAMYDIAL INFECTION
     Dates: start: 20110901, end: 20110901
  2. CLARITHROMYCIN [Suspect]
     Indication: UPPER RESPIRATORY TRACT INFECTION

REACTIONS (5)
  - LIVER DISORDER [None]
  - WEIGHT DECREASED [None]
  - CHOLESTASIS [None]
  - ANAEMIA [None]
  - LIVER FUNCTION TEST ABNORMAL [None]
